FAERS Safety Report 12885897 (Version 1)
Quarter: 2016Q4

REPORT INFORMATION
  Report Type: Spontaneous
  Country: US (occurrence: US)
  Receive Date: 20161026
  Receipt Date: 20161026
  Transmission Date: 20170207
  Serious: Yes (Hospitalization)
  Sender: FDA-Public Use
  Company Number: None

PATIENT
  Age: 82 Year
  Sex: Female
  Weight: 96.4 kg

DRUGS (11)
  1. HUMALOG [Suspect]
     Active Substance: INSULIN LISPRO
     Indication: DIABETES MELLITUS
     Dosage: HUMALOG - 9 UNITS - TID - SUBCUTANEOUSLY - DATES OF USE - CHRONIC
     Route: 058
  2. CARDIZEM CD [Concomitant]
     Active Substance: DILTIAZEM HYDROCHLORIDE
  3. LASIX [Concomitant]
     Active Substance: FUROSEMIDE
  4. COREG [Concomitant]
     Active Substance: CARVEDILOL
  5. TRADJENTA [Suspect]
     Active Substance: LINAGLIPTIN
     Indication: DIABETES MELLITUS
     Dosage: TRADJENTA - DATES OF USE - CHRONIC
     Route: 048
  6. LIPITOR [Concomitant]
     Active Substance: ATORVASTATIN CALCIUM
  7. PHOSLO [Concomitant]
     Active Substance: CALCIUM ACETATE
  8. ADVAIR HFA [Concomitant]
     Active Substance: FLUTICASONE PROPIONATE\SALMETEROL XINAFOATE
  9. ALLOPURINOL. [Concomitant]
     Active Substance: ALLOPURINOL
  10. AMIODARONE [Concomitant]
     Active Substance: AMIODARONE
  11. NEXIUM [Concomitant]
     Active Substance: ESOMEPRAZOLE MAGNESIUM

REACTIONS (2)
  - Fall [None]
  - Blood glucose decreased [None]

NARRATIVE: CASE EVENT DATE: 20150723
